FAERS Safety Report 17536448 (Version 2)
Quarter: 2025Q3

REPORT INFORMATION
  Report Type: Spontaneous
  Country: US (occurrence: US)
  Receive Date: 20200313
  Receipt Date: 20250706
  Transmission Date: 20251020
  Serious: Yes (Death, Life-Threatening, Hospitalization, Other)
  Sender: AUROBINDO
  Company Number: US-MLMSERVICE-20200226-2188599-1

PATIENT
  Age: 63 Year
  Sex: Female

DRUGS (6)
  1. METHYLPREDNISOLONE [Suspect]
     Active Substance: METHYLPREDNISOLONE
     Indication: Influenza
     Route: 042
  2. PREDNISONE [Suspect]
     Active Substance: PREDNISONE
     Indication: Influenza
     Dosage: 50 MILLIGRAM, ONCE A DAY
     Route: 048
  3. OSELTAMIVIR [Concomitant]
     Active Substance: OSELTAMIVIR
     Indication: Influenza
     Dosage: 75 MILLIGRAM, TWO TIMES A DAY
     Route: 048
  4. IPRATROPIUM [Concomitant]
     Active Substance: IPRATROPIUM
     Indication: Influenza
     Route: 055
  5. ALBUTEROL [Concomitant]
     Active Substance: ALBUTEROL
     Indication: Influenza
     Route: 055
  6. ALBUTEROL [Concomitant]
     Active Substance: ALBUTEROL
     Indication: Influenza
     Route: 065

REACTIONS (6)
  - Aspergillus infection [Fatal]
  - Cerebral haemorrhage [Fatal]
  - Cerebral aspergillosis [Fatal]
  - Neurological decompensation [Fatal]
  - Bronchopulmonary aspergillosis [Fatal]
  - Brain abscess [Fatal]
